FAERS Safety Report 8208950-5 (Version None)
Quarter: 2012Q1

REPORT INFORMATION
  Report Type: 
  Country: None (occurrence: None)
  Receive Date: 20120314
  Receipt Date: 20120306
  Transmission Date: 20120608
  Serious: Yes (Hospitalization)
  Sender: FDA-Public Use
  Company Number: US-BAYER-2012-022857

PATIENT
  Age: 48 Year
  Sex: Female
  Weight: 93.878 kg

DRUGS (11)
  1. SINGULAIR [Concomitant]
     Dosage: UNK UNK, QD
     Dates: start: 20060801
  2. ALBUTEROL [Concomitant]
     Indication: ASTHMA
     Dosage: UNK UNK, PRN
     Dates: start: 20060801
  3. ADVAIR DISKUS 100/50 [Concomitant]
     Dosage: UNK UNK, QD
     Dates: start: 20060801
  4. ZOCOR [Concomitant]
     Dosage: UNK UNK, HS
     Dates: start: 20060801
  5. ULTRACET [Concomitant]
     Indication: BACK PAIN
     Dosage: UNK UNK, PRN
     Dates: start: 20060801
  6. NAPROSYN [Concomitant]
     Indication: PAIN IN EXTREMITY
     Dosage: UNK UNK, PRN
     Dates: start: 20060801
  7. PRILOSEC [Concomitant]
     Indication: GASTROOESOPHAGEAL REFLUX DISEASE
     Dosage: UNK UNK, QD
     Dates: start: 20060801
  8. YASMIN [Suspect]
     Indication: MENOPAUSAL SYMPTOMS
     Dosage: UNK
  9. SKELAXIN [Concomitant]
     Indication: BACK PAIN
     Dosage: UNK UNK, PRN
     Dates: start: 20060801
  10. ATIVAN [Concomitant]
     Indication: ANXIETY
     Dosage: 1 MG, QID
  11. MORPHINE SULFATE [Concomitant]
     Dosage: 0.5 ML, Q2HR

REACTIONS (2)
  - PULMONARY EMBOLISM [None]
  - DEEP VEIN THROMBOSIS [None]
